FAERS Safety Report 13430581 (Version 2)
Quarter: 2017Q3

REPORT INFORMATION
  Report Type: Spontaneous
  Country: US (occurrence: US)
  Receive Date: 20170412
  Receipt Date: 20170809
  Transmission Date: 20171127
  Serious: No
  Sender: FDA-Public Use
  Company Number: US-PFIZER INC-2017160792

PATIENT
  Age: 57 Year
  Sex: Female

DRUGS (1)
  1. IBRANCE [Suspect]
     Active Substance: PALBOCICLIB
     Indication: BREAST CANCER FEMALE
     Dosage: 100 MG CYCLIC, (TAKE 1 CAP DAILY ON DAYS 1-21 EVERY 28 DAYS)
     Route: 048
     Dates: start: 201701

REACTIONS (2)
  - White blood cell count decreased [Unknown]
  - Fatigue [Not Recovered/Not Resolved]
